FAERS Safety Report 9756388 (Version 1)
Quarter: 2013Q4

REPORT INFORMATION
  Report Type: Spontaneous
  Country: US (occurrence: US)
  Receive Date: 20131213
  Receipt Date: 20131213
  Transmission Date: 20140711
  Serious: No
  Sender: FDA-Public Use
  Company Number: US-GLAXOSMITHKLINE-A1039668A

PATIENT
  Age: 79 Year
  Sex: Male
  Weight: 61 kg

DRUGS (3)
  1. EQUATE NTS 21MG, CLEAR [Suspect]
     Indication: EX-TOBACCO USER
     Dates: start: 20130829, end: 20130829
  2. BENAZEPRIL [Concomitant]
  3. DULERA [Concomitant]
     Route: 055

REACTIONS (1)
  - Blood pressure increased [Not Recovered/Not Resolved]
